FAERS Safety Report 7320761-1 (Version None)
Quarter: 2011Q1

REPORT INFORMATION
  Report Type: 
  Country: None (occurrence: None)
  Receive Date: 20110228
  Receipt Date: 20110216
  Transmission Date: 20110831
  Serious: Yes (Other)
  Sender: FDA-Public Use
  Company Number: MX-ELI_LILLY_AND_COMPANY-MX201102002225

PATIENT
  Age: 69 Year
  Sex: Female
  Weight: 49 kg

DRUGS (3)
  1. CELEBREX [Concomitant]
     Indication: BONE PAIN
     Dosage: UNK, UNKNOWN
     Route: 065
     Dates: start: 20110111, end: 20110101
  2. CORDARONE [Concomitant]
     Indication: ARRHYTHMIA
     Dosage: 0.5 D/F, DAILY (1/D)
  3. FORTEO [Suspect]
     Indication: OSTEOPOROSIS
     Dosage: 20 UG, DAILY (1/D)
     Route: 058
     Dates: start: 20110111

REACTIONS (6)
  - HYPOAESTHESIA FACIAL [None]
  - PARAESTHESIA [None]
  - COLITIS [None]
  - NERVOUSNESS [None]
  - EXTRASYSTOLES [None]
  - GASTRITIS [None]
